FAERS Safety Report 7182318-5 (Version None)
Quarter: 2010Q4

REPORT INFORMATION
  Report Type: 
  Country: None (occurrence: None)
  Receive Date: 20101221
  Receipt Date: 20100510
  Transmission Date: 20110411
  Serious: No
  Sender: FDA-Public Use
  Company Number: US-AMGEN-TCS405549

PATIENT

DRUGS (6)
  1. ENBREL [Suspect]
     Indication: RHEUMATOID ARTHRITIS
     Dosage: 50 MG, QWK
     Route: 058
     Dates: start: 20050301
  2. ENBREL [Suspect]
     Indication: PSORIATIC ARTHROPATHY
  3. METHOTREXATE [Concomitant]
     Dosage: 10 MG, QWK
     Dates: start: 20050421
  4. HYDROXYCHLOROQUINE SULFATE [Concomitant]
     Dosage: 200 MG, BID
     Dates: start: 20000301
  5. FOLIC ACID [Concomitant]
     Dosage: UNK UNK, UNK
  6. CELECOXIB [Concomitant]
     Dosage: 200 MG, QD

REACTIONS (3)
  - FALL [None]
  - FOREARM FRACTURE [None]
  - INJECTION SITE URTICARIA [None]
